FAERS Safety Report 17629566 (Version 1)
Quarter: 2020Q2

REPORT INFORMATION
  Report Type: Spontaneous
  Country: US (occurrence: US)
  Receive Date: 20200406
  Receipt Date: 20200406
  Transmission Date: 20200713
  Serious: No
  Sender: FDA-Public Use
  Company Number: US-PFIZER INC-2020138759

PATIENT
  Age: 56 Year
  Sex: Female
  Weight: 65.31 kg

DRUGS (1)
  1. IBRANCE [Suspect]
     Active Substance: PALBOCICLIB
     Indication: BREAST CANCER FEMALE
     Dosage: 75 MG, CYCLIC (DAILY, 21 OF 28 DAYS)
     Route: 048
     Dates: start: 20160801

REACTIONS (1)
  - Blood count abnormal [Unknown]
